FAERS Safety Report 6945118-4 (Version None)
Quarter: 2010Q3

REPORT INFORMATION
  Report Type: 
  Country: None (occurrence: None)
  Receive Date: 20100827
  Receipt Date: 20100818
  Transmission Date: 20110219
  Serious: Yes (Death, Other)
  Sender: FDA-Public Use
  Company Number: US-AMGEN-QUU432548

PATIENT
  Sex: Female

DRUGS (10)
  1. NPLATE [Suspect]
     Indication: IDIOPATHIC THROMBOCYTOPENIC PURPURA
     Dates: start: 20090925
  2. DOBUTAMINE HCL [Concomitant]
  3. LEVAQUIN [Concomitant]
  4. ZOSYN [Concomitant]
  5. NEXIUM [Concomitant]
  6. SYNTHROID [Concomitant]
  7. BUMEX [Concomitant]
  8. ZOFRAN [Concomitant]
  9. INSULIN [Concomitant]
  10. PLATELETS [Concomitant]

REACTIONS (2)
  - DEATH [None]
  - LYMPHOMA [None]
